FAERS Safety Report 25385446 (Version 1)
Quarter: 2025Q2

REPORT INFORMATION
  Report Type: Spontaneous
  Country: NL (occurrence: NL)
  Receive Date: 20250602
  Receipt Date: 20250602
  Transmission Date: 20250716
  Serious: Yes (Hospitalization)
  Sender: TEVA
  Company Number: None

PATIENT
  Age: 94 Year
  Sex: Male

DRUGS (10)
  1. OXYCODONE [Suspect]
     Active Substance: OXYCODONE
     Indication: Back pain
     Dosage: 1 TABLET 5 TIMES A DAY; BRAND NAME NOT SPECIFIED
     Route: 048
     Dates: start: 20221010
  2. ACETAMINOPHEN [Concomitant]
     Active Substance: ACETAMINOPHEN
     Indication: Product used for unknown indication
     Route: 048
  3. XARELTO [Concomitant]
     Active Substance: RIVAROXABAN
     Indication: Product used for unknown indication
     Route: 048
  4. PANTOPRAZOLE SODIUM [Concomitant]
     Active Substance: PANTOPRAZOLE SODIUM
     Indication: Product used for unknown indication
     Route: 048
  5. FENTANYL [Suspect]
     Active Substance: FENTANYL
     Indication: Back pain
     Dosage: 25 UG/HOUR, ONCE EVERY 3 DAYS;FENTANYL PLASTER 25UG/HOUR (NYCOMED) - NON-CURRENT DRUG / BRAND NAM...
     Route: 065
     Dates: start: 20221010
  6. LERCANIDIPINE [Suspect]
     Active Substance: LERCANIDIPINE
     Indication: Hypertension
     Dosage: 1 TABLET ONCE A DAY; BRAND NAME NOT SPECIFIED
     Route: 048
     Dates: start: 20220616
  7. PROLIA [Concomitant]
     Active Substance: DENOSUMAB
     Indication: Product used for unknown indication
     Route: 065
  8. POLYETHYLENE GLYCOLS [Concomitant]
     Active Substance: POLYETHYLENE GLYCOLS
     Indication: Product used for unknown indication
     Route: 048
  9. CALCIUM CARBONATE\CHOLECALCIFEROL [Concomitant]
     Active Substance: CALCIUM CARBONATE\CHOLECALCIFEROL
     Indication: Product used for unknown indication
     Route: 048
  10. FENOTEROL HYDROBROMIDE\IPRATROPIUM BROMIDE [Concomitant]
     Active Substance: FENOTEROL HYDROBROMIDE\IPRATROPIUM BROMIDE
     Indication: Product used for unknown indication
     Route: 065

REACTIONS (1)
  - Fall [Recovering/Resolving]
